FAERS Safety Report 24756785 (Version 1)
Quarter: 2024Q4

REPORT INFORMATION
  Report Type: Spontaneous
  Country: CN (occurrence: CN)
  Receive Date: 20241220
  Receipt Date: 20241220
  Transmission Date: 20250114
  Serious: No
  Sender: ASTELLAS
  Company Number: CN-ASTELLAS-2024-AER-025509

PATIENT
  Sex: Male

DRUGS (1)
  1. VESICARE [Suspect]
     Active Substance: SOLIFENACIN SUCCINATE
     Indication: Product used for unknown indication
     Route: 065

REACTIONS (1)
  - Product temperature excursion issue [Unknown]
